FAERS Safety Report 5453141-4 (Version None)
Quarter: 2007Q3

REPORT INFORMATION
  Report Type: 
  Country: None (occurrence: None)
  Receive Date: 20070914
  Receipt Date: 20070905
  Transmission Date: 20080115
  Serious: Yes (Death)
  Sender: FDA-Public Use
  Company Number: CA-ABBOTT-07P-028-0416220-00

PATIENT
  Sex: Female
  Weight: 81.72 kg

DRUGS (1)
  1. MAVIK [Suspect]
     Indication: HYPERTENSION
     Route: 048
     Dates: end: 20070723

REACTIONS (2)
  - DYSPEPSIA [None]
  - OESOPHAGEAL CARCINOMA [None]
